FAERS Safety Report 7156405-1 (Version None)
Quarter: 2010Q4

REPORT INFORMATION
  Report Type: 
  Country: None (occurrence: None)
  Receive Date: 20101214
  Receipt Date: 20101206
  Transmission Date: 20110411
  Serious: Yes (Hospitalization, Other)
  Sender: FDA-Public Use
  Company Number: BR-ROCHE-746543

PATIENT
  Sex: Male
  Weight: 66 kg

DRUGS (4)
  1. RIVOTRIL [Suspect]
     Indication: CEREBRAL CALCIFICATION
     Dosage: THE PATIENT TRIED TO DISCONTINUE DRUG ON HIS OWN
     Route: 065
     Dates: start: 20041111
  2. AMYTRIL [Concomitant]
     Indication: CEREBRAL CALCIFICATION
  3. CARBAMAZEPINE [Concomitant]
     Indication: CEREBRAL CALCIFICATION
  4. ANAFRANIL [Concomitant]
     Indication: CEREBRAL CALCIFICATION

REACTIONS (16)
  - AGGRESSION [None]
  - CONVULSION [None]
  - DEPRESSION [None]
  - DIZZINESS [None]
  - EXOSTOSIS [None]
  - HEADACHE [None]
  - ILL-DEFINED DISORDER [None]
  - INSOMNIA [None]
  - IRRITABILITY [None]
  - JOINT DISLOCATION [None]
  - MEMORY IMPAIRMENT [None]
  - NAUSEA [None]
  - NERVOUSNESS [None]
  - SUICIDAL IDEATION [None]
  - SYNCOPE [None]
  - WITHDRAWAL SYNDROME [None]
